FAERS Safety Report 8288211-9 (Version None)
Quarter: 2012Q2

REPORT INFORMATION
  Report Type: 
  Country: None (occurrence: None)
  Receive Date: 20120416
  Receipt Date: 20120402
  Transmission Date: 20120825
  Serious: Yes (Hospitalization)
  Sender: FDA-Public Use
  Company Number: JP-ROCHE-1004257

PATIENT
  Age: 89 Year
  Sex: Male

DRUGS (8)
  1. ALTEPLASE [Suspect]
     Indication: EMBOLIC STROKE
     Route: 042
     Dates: start: 20110105, end: 20110105
  2. EDARAVONE [Suspect]
     Indication: EMBOLIC STROKE
     Route: 041
     Dates: start: 20110105, end: 20110108
  3. LASIX [Concomitant]
     Dates: start: 20110108
  4. DIGOXIN [Concomitant]
     Dates: start: 20110106, end: 20110108
  5. NICARDIPINE HCL [Concomitant]
     Dates: start: 20110106, end: 20110107
  6. GLYCEOL [Concomitant]
     Route: 041
     Dates: start: 20110105, end: 20110106
  7. LASIX [Concomitant]
     Dates: start: 20110106, end: 20110107
  8. FAMOTIDINE [Concomitant]
     Dates: start: 20110106, end: 20110108

REACTIONS (1)
  - RENAL IMPAIRMENT [None]
